FAERS Safety Report 6778903-2 (Version None)
Quarter: 2010Q2

REPORT INFORMATION
  Report Type: 
  Country: None (occurrence: None)
  Receive Date: 20100618
  Receipt Date: 20100607
  Transmission Date: 20101027
  Serious: No
  Sender: FDA-Public Use
  Company Number: US-B.I. PHARMACEUTICALS,INC./RIDGEFIELD-2008-BP-06167BP

PATIENT
  Sex: Male

DRUGS (8)
  1. ATROVENT HFA [Suspect]
     Indication: DYSPNOEA
     Route: 055
     Dates: start: 19950101
  2. ATROVENT HFA [Suspect]
     Indication: EXPOSURE TO CHEMICAL POLLUTION
  3. ATROVENT HFA [Suspect]
     Indication: CHRONIC OBSTRUCTIVE PULMONARY DISEASE
  4. COMBIVENT [Suspect]
  5. ADVAIR DISKUS 100/50 [Concomitant]
  6. SPIRIVA [Concomitant]
  7. XOPENEX [Concomitant]
  8. AMINOPHYLLINE [Concomitant]

REACTIONS (4)
  - BREATH ALCOHOL TEST POSITIVE [None]
  - DIZZINESS [None]
  - DYSPNOEA [None]
  - TOOTH EROSION [None]
